FAERS Safety Report 18281942 (Version 1)
Quarter: 2020Q3

REPORT INFORMATION
  Report Type: Spontaneous
  Country: US (occurrence: US)
  Receive Date: 20200908
  Receipt Date: 20200908
  Transmission Date: 20201103
  Serious: Yes (Death)
  Sender: FDA-Public Use
  Company Number: None

PATIENT
  Age: 4 Decade
  Sex: Female

DRUGS (5)
  1. HYDROXYCHLOROQUINE [Suspect]
     Active Substance: HYDROXYCHLOROQUINE
     Indication: COVID-19
     Dates: start: 2020
  2. OSELTAMIVIR [Suspect]
     Active Substance: OSELTAMIVIR
  3. AZITHROMYCIN ANHYDROUS. [Suspect]
     Active Substance: AZITHROMYCIN ANHYDROUS
  4. LOPINAVIR?RITONAVIR [Suspect]
     Active Substance: LOPINAVIR\RITONAVIR
  5. CEFTRIAXONE. [Suspect]
     Active Substance: CEFTRIAXONE

REACTIONS (10)
  - Maternal exposure during pregnancy [None]
  - Circulatory collapse [None]
  - Foetal death [None]
  - Cardiac arrest [None]
  - Acute respiratory distress syndrome [None]
  - Product use issue [None]
  - Haemodialysis [None]
  - Foetal exposure during pregnancy [None]
  - Pneumothorax [None]
  - Acute kidney injury [None]
